FAERS Safety Report 8321618-X (Version None)
Quarter: 2012Q2

REPORT INFORMATION
  Report Type: 
  Country: None (occurrence: None)
  Receive Date: 20120430
  Receipt Date: 20120417
  Transmission Date: 20120825
  Serious: Yes (Death, Hospitalization)
  Sender: FDA-Public Use
  Company Number: FR-FRI-1000030089

PATIENT
  Sex: Female

DRUGS (6)
  1. PLAVIX [Suspect]
     Dosage: 75 MG
     Route: 048
     Dates: start: 20050501
  2. OMEPRAZOLE [Concomitant]
     Dosage: 20 MG
     Route: 048
     Dates: start: 20050601
  3. SINEMET [Concomitant]
     Dosage: 250 MG/25 MG DAILY
     Route: 048
     Dates: start: 20050601
  4. DIGOXIN [Concomitant]
     Dosage: 0.7143 DF
     Route: 048
     Dates: start: 20050501
  5. ESCITALOPRAM [Suspect]
     Dosage: 25 MG
     Route: 048
     Dates: start: 20111215
  6. VALSARTAN [Concomitant]
     Dosage: 40 MG
     Route: 048
     Dates: start: 20050501

REACTIONS (2)
  - HAEMORRHAGE INTRACRANIAL [None]
  - OVERDOSE [None]
